FAERS Safety Report 25773110 (Version 1)
Quarter: 2025Q3

REPORT INFORMATION
  Report Type: Report from Study
  Country: US (occurrence: US)
  Receive Date: 20250908
  Receipt Date: 20250908
  Transmission Date: 20251020
  Serious: No
  Sender: MIRUM PHARMACEUTICALS
  Company Number: US-MIRUM PHARMACEUTICALS, INC.-US-MIR-25-00600

PATIENT

DRUGS (1)
  1. LIVMARLI [Suspect]
     Active Substance: MARALIXIBAT CHLORIDE
     Indication: Biliary obstruction
     Dosage: 20 MILLIGRAM, QD
     Route: 065
     Dates: start: 202506

REACTIONS (8)
  - Hepatic enzyme increased [Unknown]
  - Muscle spasms [Not Recovered/Not Resolved]
  - Vitamin A deficiency [Unknown]
  - Vitamin D deficiency [Unknown]
  - Vitamin E deficiency [Unknown]
  - Vitamin K deficiency [Unknown]
  - Diarrhoea [Recovered/Resolved]
  - Off label use [Unknown]

NARRATIVE: CASE EVENT DATE: 20250601
